FAERS Safety Report 9221081 (Version 4)
Quarter: 2014Q1

REPORT INFORMATION
  Report Type: Spontaneous
  Country: US (occurrence: US)
  Receive Date: 20130409
  Receipt Date: 20140218
  Transmission Date: 20141002
  Serious: Yes (Other)
  Sender: FDA-Public Use
  Company Number: US-PFIZER INC-2013106618

PATIENT
  Sex: Female

DRUGS (1)
  1. ESTRING [Suspect]
     Dosage: UNK

REACTIONS (14)
  - Cystitis [Unknown]
  - Neoplasm [Unknown]
  - Uterine disorder [Unknown]
  - Ovarian disorder [Unknown]
  - Breast disorder [Unknown]
  - Pharyngitis [Unknown]
  - Aphagia [Unknown]
  - Vulvovaginal discomfort [Unknown]
  - Fatigue [Unknown]
  - Stress [Unknown]
  - Malaise [Unknown]
  - Weight decreased [Unknown]
  - Abdominal pain upper [Unknown]
  - Intentional drug misuse [Unknown]
